FAERS Safety Report 17519462 (Version 2)
Quarter: 2020Q1

REPORT INFORMATION
  Report Type: Spontaneous
  Country: JP (occurrence: JP)
  Receive Date: 20200310
  Receipt Date: 20200327
  Transmission Date: 20200409
  Serious: Yes (Hospitalization, Other)
  Sender: FDA-Public Use
  Company Number: JP-GLAXOSMITHKLINE-JP2020JPN041252

PATIENT
  Age: 89 Year
  Sex: Female
  Weight: 40 kg

DRUGS (17)
  1. CALONAL TABLET [Concomitant]
     Dosage: 200 MG
  2. LIMAPROST ALFADEX TABLETS [Concomitant]
     Dosage: 5 ?G
  3. TRIAZOLAM TABLETS [Concomitant]
     Active Substance: TRIAZOLAM
     Dosage: 0.25 MG
  4. LEBENIN-S [Concomitant]
     Dosage: UNK
  5. CALONAL TABLET [Concomitant]
     Dosage: 1.25 MG
  6. EQUA TABLETS [Concomitant]
     Dosage: 50 MG
  7. ETIZOLAM TABLETS [Concomitant]
     Dosage: 0.5 MG
  8. SULPIRIDE TABLETS [Concomitant]
     Active Substance: SULPIRIDE
     Dosage: 50 MG
  9. CHINESE MEDICINE [Concomitant]
     Active Substance: UNSPECIFIED INGREDIENT
     Dosage: UNK
  10. TAKELDA COMBINATION TABLETS [Concomitant]
     Active Substance: ASPIRIN\LANSOPRAZOLE
     Dosage: UNK
  11. MECOBALAMIN TABLETS [Concomitant]
     Active Substance: METHYLCOBALAMIN
     Dosage: 500 ?G
  12. NIFEDIPINE CR TABLETS [Concomitant]
     Dosage: 20 MG
  13. MAGNESIUM OXIDE. [Concomitant]
     Active Substance: MAGNESIUM OXIDE
     Dosage: UNK
  14. PANTETHINE [Concomitant]
     Active Substance: PANTETHINE
     Dosage: UNK
  15. NE SOFT CAPSULES [Concomitant]
     Dosage: 200 MG
  16. VALTREX [Suspect]
     Active Substance: VALACYCLOVIR HYDROCHLORIDE
     Indication: HERPES ZOSTER
     Dosage: 1000 MG, TID
     Route: 048
     Dates: start: 20190828, end: 20190829
  17. LYRICA OD TABLETS [Concomitant]
     Dosage: 25 MG

REACTIONS (8)
  - Acute kidney injury [Recovering/Resolving]
  - Blood creatinine increased [Unknown]
  - Inappropriate schedule of product administration [Unknown]
  - Altered state of consciousness [Recovering/Resolving]
  - Speech disorder [Unknown]
  - Abnormal behaviour [Unknown]
  - Polyuria [Unknown]
  - Prescribed overdose [Unknown]

NARRATIVE: CASE EVENT DATE: 20190828
